FAERS Safety Report 19351261 (Version 2)
Quarter: 2021Q3

REPORT INFORMATION
  Report Type: Spontaneous
  Country: US (occurrence: US)
  Receive Date: 20210531
  Receipt Date: 20210914
  Transmission Date: 20211014
  Serious: Yes (Other)
  Sender: FDA-Public Use
  Company Number: US-TEVA-2021-US-1917898

PATIENT
  Sex: Male

DRUGS (3)
  1. VALSARTAN HYDROCHLORTHIAZIDE MYLAN [Suspect]
     Active Substance: HYDROCHLOROTHIAZIDE\VALSARTAN
     Indication: HYPERTENSION
     Dosage: 160/25 MG
     Dates: start: 20121105, end: 20151106
  2. VALSARTAN HYDROCHLORTHIAZIDE SOLCO [Suspect]
     Active Substance: HYDROCHLOROTHIAZIDE\VALSARTAN
     Indication: HYPERTENSION
     Dosage: 160/25 MG
     Dates: start: 20161208, end: 20171101
  3. VALSARTAN HYDROCHLORTHIAZIDE AUROBINDO [Suspect]
     Active Substance: HYDROCHLOROTHIAZIDE\VALSARTAN
     Indication: HYPERTENSION
     Dosage: 160/25 MG
     Dates: start: 20180727, end: 20190518

REACTIONS (1)
  - Colorectal cancer [Unknown]
